FAERS Safety Report 12220186 (Version 1)
Quarter: 2016Q1

REPORT INFORMATION
  Report Type: Spontaneous
  Country: DE (occurrence: DE)
  Receive Date: 20160330
  Receipt Date: 20160330
  Transmission Date: 20160526
  Serious: Yes (Other)
  Sender: FDA-Public Use
  Company Number: DE-DRREDDYS-GER/GER/16/0078166

PATIENT
  Age: 0 Year
  Sex: Male
  Weight: 3.29 kg

DRUGS (7)
  1. AMITRIPTYLINE [Suspect]
     Active Substance: AMITRIPTYLINE
     Indication: BIPOLAR DISORDER
     Route: 064
     Dates: start: 20150116, end: 20151013
  2. ORTHOMOL NATAL [Concomitant]
     Indication: PROPHYLAXIS OF NEURAL TUBE DEFECT
     Route: 064
     Dates: start: 20150201, end: 20151013
  3. LORATADINE. [Concomitant]
     Active Substance: LORATADINE
     Indication: PRODUCT USED FOR UNKNOWN INDICATION
     Route: 064
  4. CITALOPRAM [Suspect]
     Active Substance: CITALOPRAM HYDROBROMIDE
     Indication: BIPOLAR DISORDER
     Route: 064
     Dates: start: 20150116, end: 20151013
  5. NASONEX [Concomitant]
     Active Substance: MOMETASONE FUROATE
     Indication: PRODUCT USED FOR UNKNOWN INDICATION
     Route: 064
  6. VOMEX A [Concomitant]
     Active Substance: DIMENHYDRINATE
     Indication: PRODUCT USED FOR UNKNOWN INDICATION
     Dosage: 100 OR 50MG ON DEMAND
     Route: 064
  7. NOVOTHYRAL [Concomitant]
     Active Substance: LEVOTHYROXINE SODIUM\LIOTHYRONINE SODIUM
     Indication: AUTOIMMUNE THYROIDITIS
     Route: 064
     Dates: start: 20150116, end: 20151013

REACTIONS (2)
  - Pyloric stenosis [Recovered/Resolved with Sequelae]
  - Foetal exposure during pregnancy [Unknown]
